FAERS Safety Report 7074666-4 (Version None)
Quarter: 2010Q4

REPORT INFORMATION
  Report Type: 
  Country: None (occurrence: None)
  Receive Date: 20101029
  Receipt Date: 20101022
  Transmission Date: 20110411
  Serious: Yes (Hospitalization)
  Sender: FDA-Public Use
  Company Number: B0680792A

PATIENT
  Sex: Female

DRUGS (5)
  1. ONDANSETRON HCL [Suspect]
     Indication: ANTIEMETIC SUPPORTIVE CARE
     Dosage: 8MG SINGLE DOSE
     Route: 034
     Dates: start: 20100827, end: 20100827
  2. CISPLATIN [Suspect]
     Dosage: 65MG PER DAY
     Route: 034
     Dates: start: 20100827, end: 20100827
  3. NAVELBINE [Suspect]
     Dosage: 39.5MG PER DAY
     Route: 034
     Dates: start: 20100827, end: 20100827
  4. SOLU-MEDROL [Suspect]
     Indication: PRODUCT USED FOR UNKNOWN INDICATION
     Dosage: 120MG PER DAY
     Route: 034
     Dates: start: 20100827, end: 20100827
  5. POLYIONIQUE (GLUCOSE) [Suspect]
     Indication: FLUID REPLACEMENT
     Dosage: 2L PER DAY
     Route: 034
     Dates: start: 20100827, end: 20100827

REACTIONS (5)
  - BLOOD PRESSURE INCREASED [None]
  - CHEST PAIN [None]
  - DYSPNOEA [None]
  - MEDICATION ERROR [None]
  - OXYGEN SATURATION DECREASED [None]
